FAERS Safety Report 15239414 (Version 1)
Quarter: 2018Q3

REPORT INFORMATION
  Report Type: Spontaneous
  Country: IE (occurrence: IE)
  Receive Date: 20180803
  Receipt Date: 20180803
  Transmission Date: 20181010
  Serious: Yes (Hospitalization, Other)
  Sender: FDA-Public Use
  Company Number: IE-ASTRAZENECA-2018SE96900

PATIENT
  Age: 80 Year
  Sex: Male

DRUGS (2)
  1. METFORMIN [Concomitant]
     Active Substance: METFORMIN HYDROCHLORIDE
  2. FORXIGA [Suspect]
     Active Substance: DAPAGLIFLOZIN
     Dosage: 10.0MG UNKNOWN
     Route: 048

REACTIONS (3)
  - Glomerular filtration rate decreased [Recovering/Resolving]
  - Loss of consciousness [Recovering/Resolving]
  - Diabetic ketoacidosis [Recovering/Resolving]
